FAERS Safety Report 7988471-5 (Version None)
Quarter: 2011Q4

REPORT INFORMATION
  Report Type: 
  Country: None (occurrence: None)
  Receive Date: 20111216
  Receipt Date: 20111213
  Transmission Date: 20120403
  Serious: Yes (Other)
  Sender: FDA-Public Use
  Company Number: BR-PFIZER INC-2011303244

PATIENT
  Age: 59 Year
  Sex: Female
  Weight: 80 kg

DRUGS (3)
  1. NEOZINE [Concomitant]
     Indication: SLEEP DISORDER
     Dosage: UNK
     Dates: start: 19790101
  2. VARENICLINE TARTRATE [Suspect]
     Indication: TOBACCO USER
     Dosage: 0.5 MG, 1X/DAY
     Route: 048
     Dates: start: 20111117, end: 20111211
  3. DIAZEPAM [Concomitant]
     Indication: SLEEP DISORDER
     Dosage: UNK
     Dates: start: 19790101

REACTIONS (8)
  - DEPRESSION [None]
  - SUICIDAL IDEATION [None]
  - ASTHENIA [None]
  - EMPHYSEMA [None]
  - WEIGHT DECREASED [None]
  - HOMICIDAL IDEATION [None]
  - FEELING ABNORMAL [None]
  - SOMNOLENCE [None]
